FAERS Safety Report 5698197-9 (Version None)
Quarter: 2008Q2

REPORT INFORMATION
  Report Type: 
  Country: None (occurrence: None)
  Receive Date: 20080408
  Receipt Date: 20080326
  Transmission Date: 20081010
  Serious: Yes (Other)
  Sender: FDA-Public Use
  Company Number: US-ELI_LILLY_AND_COMPANY-US200803006570

PATIENT
  Age: 43 Year
  Sex: Female

DRUGS (2)
  1. EVISTA [Suspect]
     Dosage: 60 MG, UNK
     Route: 048
  2. HORMONES AND RELATED AGENTS [Concomitant]

REACTIONS (2)
  - BONE DENSITY DECREASED [None]
  - GASTRIC BYPASS [None]
